FAERS Safety Report 23797103 (Version 2)
Quarter: 2024Q2

REPORT INFORMATION
  Report Type: Spontaneous
  Country: US (occurrence: US)
  Receive Date: 20240430
  Receipt Date: 20240528
  Transmission Date: 20240716
  Serious: Yes (Other)
  Sender: FDA-Public Use
  Company Number: US-BRISTOL-MYERS SQUIBB COMPANY-2024-067144

PATIENT
  Age: 82 Year
  Sex: Female

DRUGS (2)
  1. LENALIDOMIDE [Suspect]
     Active Substance: LENALIDOMIDE
     Indication: Plasma cell myeloma
     Dosage: TAKE 1 CAPSULE WHOLE BY MOUTH WITH WATER, W/ OR W/O FOOD, AT AROUND THE SAME TIME DAILY ON DAYS 1-14
     Route: 048
  2. LENALIDOMIDE [Suspect]
     Active Substance: LENALIDOMIDE
     Route: 048

REACTIONS (3)
  - Eye disorder [Recovered/Resolved]
  - Off label use [Unknown]
  - Musculoskeletal stiffness [Recovering/Resolving]
